FAERS Safety Report 25010060 (Version 1)
Quarter: 2025Q1

REPORT INFORMATION
  Report Type: Other
  Country: US (occurrence: US)
  Receive Date: 20250225
  Receipt Date: 20250225
  Transmission Date: 20250408
  Serious: Yes (Hospitalization, Other)
  Sender: ALVOGEN
  Company Number: US-ALVOGEN-2025096323

PATIENT
  Age: 71 Year
  Sex: Female

DRUGS (2)
  1. FLECAINIDE [Suspect]
     Active Substance: FLECAINIDE
     Indication: Atrial fibrillation
  2. MOLNUPIRAVIR [Concomitant]
     Active Substance: MOLNUPIRAVIR
     Indication: COVID-19

REACTIONS (9)
  - Toxicity to various agents [Recovering/Resolving]
  - Cardiogenic shock [Unknown]
  - Right ventricular dysfunction [Unknown]
  - Lactic acidosis [Unknown]
  - Septic shock [Unknown]
  - Drug hypersensitivity [Unknown]
  - Arrhythmic storm [Recovering/Resolving]
  - Bundle branch block right [Unknown]
  - Overdose [Unknown]
